FAERS Safety Report 15434527 (Version 1)
Quarter: 2018Q3

REPORT INFORMATION
  Report Type: Spontaneous
  Country: US (occurrence: US)
  Receive Date: 20180927
  Receipt Date: 20180927
  Transmission Date: 20181010
  Serious: No
  Sender: FDA-Public Use
  Company Number: US-GLAXOSMITHKLINE-US2018169765

PATIENT
  Age: 46 Year
  Sex: Female

DRUGS (2)
  1. ABREVA [Suspect]
     Active Substance: DOCOSANOL
     Indication: ORAL HERPES
     Dosage: UNK (USED 5 TIMES A DAY)
     Dates: start: 20180807
  2. ABREVA [Suspect]
     Active Substance: DOCOSANOL
     Dosage: UNK (USED 5 TIMES A DAY)
     Dates: end: 20180812

REACTIONS (1)
  - Incorrect drug administration duration [Unknown]
